FAERS Safety Report 5887439-2 (Version None)
Quarter: 2008Q3

REPORT INFORMATION
  Report Type: 
  Country: None (occurrence: None)
  Receive Date: 20080917
  Receipt Date: 20080917
  Transmission Date: 20090109
  Serious: Yes (Hospitalization)
  Sender: FDA-Public Use
  Company Number: None

PATIENT
  Age: 62 Year
  Sex: Male
  Weight: 75.7961 kg

DRUGS (1)
  1. OXALIPLATIN [Suspect]
     Indication: PANCREATIC CARCINOMA
     Dosage: 130MG/M2 IV
     Route: 042

REACTIONS (11)
  - ABDOMINAL PAIN [None]
  - ASTHENIA [None]
  - CATHETER SITE INFECTION [None]
  - DIABETES MELLITUS [None]
  - HYPOPHAGIA [None]
  - INFECTION [None]
  - NAUSEA [None]
  - NEUTROPHIL COUNT INCREASED [None]
  - PURULENT DISCHARGE [None]
  - VOMITING [None]
  - WHITE BLOOD CELL COUNT INCREASED [None]
